FAERS Safety Report 9850761 (Version 5)
Quarter: 2014Q1

REPORT INFORMATION
  Report Type: Spontaneous
  Country: JP (occurrence: JP)
  Receive Date: 20140128
  Receipt Date: 20140311
  Transmission Date: 20141002
  Serious: Yes (Hospitalization)
  Sender: FDA-Public Use
  Company Number: JP-PFIZER INC-2014024216

PATIENT
  Age: 69 Year
  Sex: Female
  Weight: 45 kg

DRUGS (34)
  1. CAMPTO [Suspect]
     Indication: RECTAL CANCER
     Dosage: 250 MG (180.8 MG/M2), ONCE A DAY
     Route: 041
     Dates: start: 20131128, end: 20131128
  2. CAMPTO [Suspect]
     Dosage: 250 MG, ONCE A DAY
     Route: 041
     Dates: start: 20131212, end: 20131212
  3. CAMPTO [Suspect]
     Dosage: 250 MG, ONCE A DAY
     Route: 041
     Dates: start: 20131226, end: 20131226
  4. LEVOFOLINATE CALCIUM [Suspect]
     Indication: RECTAL CANCER
     Dosage: 275 MG, (198.8 MG/M2) ONCE A DAY
     Route: 041
     Dates: start: 20131128, end: 20131128
  5. LEVOFOLINATE CALCIUM [Suspect]
     Dosage: 275 MG, ONCE A DAY
     Route: 041
     Dates: start: 20131212, end: 20131212
  6. LEVOFOLINATE CALCIUM [Suspect]
     Dosage: 275 MG, ONCE A DAY
     Route: 041
     Dates: start: 20131226
  7. 5-FU [Suspect]
     Indication: RECTAL CANCER
     Dosage: 550 MG (397.7 MG/M2), ONCE A DAY
     Route: 040
     Dates: start: 20131128, end: 20131128
  8. 5-FU [Suspect]
     Dosage: 3350 MG (2422.3 MG/M2), ONCE IN 2DAYS
     Route: 041
     Dates: start: 20131128, end: 20131128
  9. 5-FU [Suspect]
     Dosage: 550 MG, ONCE A DAY
     Route: 040
     Dates: start: 20131212, end: 20131212
  10. 5-FU [Suspect]
     Dosage: 3350 MG, ONCE IN 2DAYS
     Route: 041
     Dates: start: 20131212, end: 20131212
  11. 5-FU [Suspect]
     Dosage: 550 MG, ONCE A DAY
     Route: 040
     Dates: start: 20131226, end: 20131226
  12. 5-FU [Suspect]
     Dosage: 3350 MG, ONCE IN 2DAYS
     Route: 041
     Dates: start: 20131226, end: 20131226
  13. AVE0005 [Suspect]
     Indication: RECTAL CANCER
     Dosage: 192 MG (4 MG/KG), ONCE IN 2WEEKS
     Route: 041
     Dates: start: 20131128, end: 20131128
  14. AVE0005 [Suspect]
     Dosage: 192 MG, ONCE IN 2WEEKS
     Route: 041
     Dates: start: 20131212, end: 20131212
  15. AVE0005 [Suspect]
     Dosage: 192 MG, ONCE IN 2WEEKS
     Route: 041
     Dates: start: 20131226
  16. THEODUR [Concomitant]
     Dosage: UNK
     Dates: start: 200607
  17. IPD [Concomitant]
     Dosage: UNK
     Dates: start: 200607
  18. MUCODYNE [Concomitant]
     Dosage: UNK
     Dates: start: 200607
  19. TANATRIL [Concomitant]
     Dosage: UNK
     Dates: start: 200607
  20. ADALAT CR [Concomitant]
     Dosage: UNK
     Dates: start: 200607
  21. KIPRES [Concomitant]
     Dosage: UNK
     Dates: start: 200607
  22. PROTECADIN [Concomitant]
     Dosage: UNK
     Dates: start: 200607
  23. MEDROL [Concomitant]
     Dosage: UNK
     Dates: start: 200607
  24. ADOAIR [Concomitant]
     Dosage: UNK
     Dates: start: 200607
  25. SULTANOL [Concomitant]
     Dosage: UNK
     Route: 055
     Dates: start: 200607
  26. MAGMITT [Concomitant]
     Dosage: UNK
     Dates: start: 20130110
  27. CELECOX [Concomitant]
     Dosage: UNK
     Dates: start: 20130201
  28. LYRICA [Concomitant]
     Dosage: UNK
     Dates: start: 20130903
  29. GASCON [Concomitant]
     Dosage: UNK
     Dates: start: 20130204
  30. AZUNOL GARGLE LIQUID [Concomitant]
     Dosage: UNK
     Dates: start: 20130214
  31. OXYCONTIN [Concomitant]
     Dosage: UNK
     Dates: start: 20130130
  32. OXINORM [Concomitant]
     Dosage: UNK
     Dates: start: 20130214
  33. ROCALTROL [Concomitant]
     Dosage: UNK
  34. MEIACT [Concomitant]
     Dosage: UNK
     Dates: start: 20140111

REACTIONS (8)
  - Fatigue [Recovered/Resolved]
  - Oesophagitis [Recovered/Resolved]
  - Pharyngitis [Recovered/Resolved]
  - Decreased appetite [Recovered/Resolved]
  - Stomatitis [Recovered/Resolved]
  - Urinary tract infection [Recovered/Resolved]
  - Constipation [Recovered/Resolved]
  - Back pain [Recovered/Resolved]
